FAERS Safety Report 8433398-8 (Version None)
Quarter: 2012Q2

REPORT INFORMATION
  Report Type: 
  Country: None (occurrence: None)
  Receive Date: 20120607
  Receipt Date: 20120524
  Transmission Date: 20120825
  Serious: No
  Sender: FDA-Public Use
  Company Number: JP-2012-15112

PATIENT
  Age: 55 Year
  Sex: Female
  Weight: 82 kg

DRUGS (14)
  1. CANDESARTAN CILEXETIL [Concomitant]
  2. FUROSEMIDE (FUROSEMIDE SODIUM) INJECTION [Concomitant]
  3. FUROSEMIDE (FUROSEMIDE SODIUM) INJECTION [Concomitant]
  4. NORVASC [Concomitant]
  5. UNISIA (CANDESARTAN CILEXETIL AMLODIPINE) TABLET [Concomitant]
  6. MYOCOR (GLYCERYL TRINITRATE) INJECTION [Concomitant]
  7. FUROSEMIDE (FUROSEMIDE SODIUM) INJECTION [Concomitant]
  8. HANP (CARPERITIDE) INJECTION [Concomitant]
  9. FRANDOL (ISOSORBIDE DINITRATE) TRANSDERMAL PATCH [Concomitant]
  10. FUROSEMIDE (FUROSEMIDE SODIUM) INJECTION [Concomitant]
  11. HANP (CARPERITIDE) INJECTION [Concomitant]
  12. SAMSCA [Suspect]
     Indication: FLUID RETENTION
     Dosage: 7.5 MG MILLIGRAM(S), QAM, ORAL, 15 MG MILLIGRAM(S), QAM, ORAL
     Route: 048
     Dates: start: 20120202, end: 20120203
  13. SAMSCA [Suspect]
     Indication: FLUID RETENTION
     Dosage: 7.5 MG MILLIGRAM(S), QAM, ORAL, 15 MG MILLIGRAM(S), QAM, ORAL
     Route: 048
     Dates: start: 20120204
  14. FUROSEMIDE (FUROSEMIDE SODIUM) INJECTION [Concomitant]

REACTIONS (1)
  - INFLUENZA [None]
